FAERS Safety Report 14343145 (Version 1)
Quarter: 2017Q4

REPORT INFORMATION
  Report Type: Spontaneous
  Country: US (occurrence: US)
  Receive Date: 20171231
  Receipt Date: 20171231
  Transmission Date: 20180321
  Serious: Yes (Hospitalization, Disabling, Other)
  Sender: FDA-Public Use
  Company Number: None

PATIENT
  Age: 60 Year
  Sex: Female
  Weight: 89.55 kg

DRUGS (10)
  1. CIPRO [Suspect]
     Active Substance: CIPROFLOXACIN HYDROCHLORIDE
     Indication: URINARY TRACT INFECTION
     Dosage: ?          QUANTITY:20 TABLET(S);?
     Route: 048
     Dates: start: 20171014, end: 20171024
  2. D10W [Concomitant]
     Active Substance: DEXTROSE\WATER
  3. METROPOLOL [Concomitant]
     Active Substance: METOPROLOL
  4. MAGNESIUM [Concomitant]
     Active Substance: MAGNESIUM
  5. VITAMIN B12 [Concomitant]
     Active Substance: CYANOCOBALAMIN
  6. VITAMIN D3 [Concomitant]
     Active Substance: CHOLECALCIFEROL
  7. PRAVASTATIN. [Concomitant]
     Active Substance: PRAVASTATIN
  8. FOLIC ACID. [Concomitant]
     Active Substance: FOLIC ACID
  9. LISINIOPROL [Concomitant]
  10. COQ10 [Concomitant]
     Active Substance: UBIDECARENONE

REACTIONS (11)
  - Suicidal ideation [None]
  - Arthralgia [None]
  - Bone pain [None]
  - Depression [None]
  - Panic attack [None]
  - Feeling cold [None]
  - Pain in jaw [None]
  - Insomnia [None]
  - Muscular weakness [None]
  - Hallucination [None]
  - Paraesthesia [None]

NARRATIVE: CASE EVENT DATE: 20171128
